FAERS Safety Report 6808995-3 (Version None)
Quarter: 2010Q2

REPORT INFORMATION
  Report Type: 
  Country: None (occurrence: None)
  Receive Date: 20100630
  Receipt Date: 20091122
  Transmission Date: 20101027
  Serious: Yes (Hospitalization)
  Sender: FDA-Public Use
  Company Number: US-PFIZER INC-2009281219

PATIENT

DRUGS (1)
  1. NITROGLYCERIN [Suspect]
     Route: 060

REACTIONS (1)
  - BLOOD PRESSURE DECREASED [None]
